FAERS Safety Report 17553013 (Version 1)
Quarter: 2020Q1

REPORT INFORMATION
  Report Type: Report from Study
  Country: CA (occurrence: CA)
  Receive Date: 20200317
  Receipt Date: 20200317
  Transmission Date: 20200409
  Serious: Yes (Death, Hospitalization)
  Sender: FDA-Public Use
  Company Number: CA-EXELIXIS-CABO-19018426

PATIENT
  Age: 71 Year
  Sex: Male

DRUGS (2)
  1. CABOMETYX [Suspect]
     Active Substance: CABOZANTINIB S-MALATE
     Dosage: 20 MG QOD AND 40 MG QOD ON OPPOSITE DAYS
     Dates: start: 201901
  2. CABOMETYX [Suspect]
     Active Substance: CABOZANTINIB S-MALATE
     Indication: RENAL CELL CARCINOMA
     Dosage: 60 MG, QD (1X20MG TABLET AND 1X40 MG TABLET)
     Route: 048
     Dates: start: 20190111, end: 201901

REACTIONS (4)
  - Death [Fatal]
  - Fatigue [Unknown]
  - Malignant neoplasm progression [Not Recovered/Not Resolved]
  - Hypersomnia [Unknown]

NARRATIVE: CASE EVENT DATE: 20190117
